FAERS Safety Report 4396957-8 (Version None)
Quarter: 2004Q2

REPORT INFORMATION
  Report Type: 
  Country: None (occurrence: None)
  Receive Date: 20040621
  Receipt Date: 20031218
  Transmission Date: 20050107
  Serious: Yes (Hospitalization, Other)
  Sender: FDA-Public Use
  Company Number: USA-2003-0012182

PATIENT
  Age: 17 Year
  Sex: Female

DRUGS (2)
  1. OXYCONTIN [Suspect]
  2. HEROIN (DIAMORPHINE) [Suspect]

REACTIONS (8)
  - DECREASED APPETITE [None]
  - DRUG ABUSER [None]
  - DRUG WITHDRAWAL SYNDROME [None]
  - HYPERHIDROSIS [None]
  - INSOMNIA [None]
  - RETCHING [None]
  - TREMOR [None]
  - VOMITING [None]
